FAERS Safety Report 8872870 (Version 1)
Quarter: 2012Q4

REPORT INFORMATION
  Report Type: Report from Study
  Country: CA (occurrence: CA)
  Receive Date: 20121030
  Receipt Date: 20121030
  Transmission Date: 20130627
  Serious: Yes (Other)
  Sender: FDA-Public Use
  Company Number: CA-ROCHE-1150258

PATIENT
  Age: 56 Year
  Sex: Male

DRUGS (6)
  1. PEG-INTERFERON ALFA 2A [Suspect]
     Indication: HEPATITIS C
     Route: 058
     Dates: start: 20120502
  2. RIBAVIRIN [Suspect]
     Indication: HEPATITIS C
     Route: 048
  3. VICTRELIS [Concomitant]
     Route: 065
  4. FLOVENT [Concomitant]
     Route: 065
  5. WELLBUTRIN [Concomitant]
     Route: 065
  6. DIAMICRON [Concomitant]
     Route: 065

REACTIONS (1)
  - Respiratory distress [Not Recovered/Not Resolved]
